FAERS Safety Report 6082557-0 (Version None)
Quarter: 2009Q1

REPORT INFORMATION
  Report Type: 
  Country: None (occurrence: None)
  Receive Date: 20090202
  Receipt Date: 20080117
  Transmission Date: 20090719
  Serious: No
  Sender: FDA-Public Use
  Company Number: 269331

PATIENT
  Age: 57 Year
  Sex: Female
  Weight: 81.2 kg

DRUGS (2)
  1. NOVOLOG [Suspect]
     Indication: TYPE 1 DIABETES MELLITUS
     Dosage: SUBCUTAN.-PUMP ; 13 IU, SINGLE, SUBCUTANEOUS
     Route: 058
     Dates: start: 20071112, end: 20071112
  2. NOVOLOG [Suspect]
     Indication: TYPE 1 DIABETES MELLITUS
     Dosage: SUBCUTAN.-PUMP ; 13 IU, SINGLE, SUBCUTANEOUS
     Route: 058
     Dates: start: 20000101

REACTIONS (1)
  - BLOOD GLUCOSE INCREASED [None]
